FAERS Safety Report 12968294 (Version 1)
Quarter: 2016Q4

REPORT INFORMATION
  Report Type: Spontaneous
  Country: PT (occurrence: PT)
  Receive Date: 20161123
  Receipt Date: 20161123
  Transmission Date: 20170207
  Serious: Yes (Other)
  Sender: FDA-Public Use
  Company Number: PT-009507513-1611PRT010095

PATIENT
  Age: 50 Year
  Sex: Female
  Weight: 63 kg

DRUGS (2)
  1. REBETOL [Suspect]
     Active Substance: RIBAVIRIN
     Indication: HEPATITIS C
     Route: 048
     Dates: start: 20161017, end: 20161027
  2. SOVALDI [Suspect]
     Active Substance: SOFOSBUVIR
     Indication: HEPATITIS C
     Route: 048
     Dates: start: 20161017, end: 20161027

REACTIONS (13)
  - Constipation [Recovering/Resolving]
  - Weight increased [Recovering/Resolving]
  - Fatigue [Recovering/Resolving]
  - Hair disorder [Recovering/Resolving]
  - Insomnia [Recovering/Resolving]
  - Dry skin [Recovering/Resolving]
  - Alopecia [Recovering/Resolving]
  - Abdominal pain upper [Recovering/Resolving]
  - Myalgia [Recovering/Resolving]
  - Mood swings [Recovering/Resolving]
  - Lip dry [Recovering/Resolving]
  - Nausea [Recovering/Resolving]
  - Rash erythematous [Recovering/Resolving]

NARRATIVE: CASE EVENT DATE: 20161017
